FAERS Safety Report 18741682 (Version 1)
Quarter: 2021Q1

REPORT INFORMATION
  Report Type: Spontaneous
  Country: US (occurrence: US)
  Receive Date: 20210114
  Receipt Date: 20210114
  Transmission Date: 20210419
  Serious: Yes (Other)
  Sender: FDA-Public Use
  Company Number: US-SUN PHARMACEUTICAL INDUSTRIES LTD-2020R1-275600

PATIENT
  Age: 59 Year
  Sex: Male

DRUGS (3)
  1. BACLOFENE SUN [Suspect]
     Active Substance: BACLOFEN
     Indication: ATRIAL FIBRILLATION
     Route: 037
  2. BACLOFENE SUN [Suspect]
     Active Substance: BACLOFEN
     Indication: CEREBROVASCULAR ACCIDENT
  3. BACLOFENE SUN [Suspect]
     Active Substance: BACLOFEN
     Indication: HEMIPARESIS

REACTIONS (4)
  - Toxicity to various agents [Unknown]
  - Respiratory failure [Unknown]
  - Status epilepticus [Unknown]
  - Encephalopathy [Unknown]
